FAERS Safety Report 22524543 (Version 1)
Quarter: 2023Q2

REPORT INFORMATION
  Report Type: Spontaneous
  Country: KR (occurrence: KR)
  Receive Date: 20230606
  Receipt Date: 20230606
  Transmission Date: 20230722
  Serious: Yes (Death, Other)
  Sender: FDA-Public Use
  Company Number: KR-ORGANON-O2306KOR000188

PATIENT
  Age: 79 Year
  Sex: Male

DRUGS (3)
  1. HYDROCHLOROTHIAZIDE\LOSARTAN POTASSIUM [Suspect]
     Active Substance: HYDROCHLOROTHIAZIDE\LOSARTAN POTASSIUM
     Dosage: UNK; DOSAGE FORM: FILM COATED TABLET
     Route: 048
     Dates: start: 20141013, end: 20150428
  2. CILOSTAZOL [Suspect]
     Active Substance: CILOSTAZOL
     Indication: Cerebral infarction
     Dosage: 200 MILLIGRAM, 1 DAY, DOSAGE FORM: SUSTAINED-RELEASE CAPSULES, PELLETS
     Route: 048
     Dates: start: 20141104, end: 20150428
  3. PITAVASTATIN CALCIUM [Concomitant]
     Active Substance: PITAVASTATIN CALCIUM
     Dosage: UNK
     Dates: start: 20130319, end: 20150428

REACTIONS (1)
  - Suicide attempt [Fatal]

NARRATIVE: CASE EVENT DATE: 20150429
